FAERS Safety Report 14326684 (Version 3)
Quarter: 2018Q1

REPORT INFORMATION
  Report Type: Spontaneous
  Country: IN (occurrence: IN)
  Receive Date: 20171227
  Receipt Date: 20180115
  Transmission Date: 20180509
  Serious: Yes (Hospitalization, Other)
  Sender: FDA-Public Use
  Company Number: IN-VISTAPHARM, INC.-VER201712-001435

PATIENT
  Age: 33 Year
  Sex: Female
  Weight: 50 kg

DRUGS (3)
  1. PHENYTOIN. [Suspect]
     Active Substance: PHENYTOIN
  2. VALPROIC ACID. [Suspect]
     Active Substance: VALPROIC ACID
     Indication: STATUS EPILEPTICUS
  3. PHENYTOIN. [Suspect]
     Active Substance: PHENYTOIN
     Indication: SEIZURE

REACTIONS (6)
  - Loss of consciousness [Unknown]
  - Drug interaction [Unknown]
  - Status epilepticus [Recovering/Resolving]
  - Gangrene [Unknown]
  - Suicide attempt [Unknown]
  - Overdose [Unknown]
